FAERS Safety Report 15313450 (Version 1)
Quarter: 2018Q3

REPORT INFORMATION
  Report Type: Spontaneous
  Country: US (occurrence: US)
  Receive Date: 20180824
  Receipt Date: 20180824
  Transmission Date: 20181010
  Serious: Yes (Other)
  Sender: FDA-Public Use
  Company Number: US-ASTRAZENECA-2018SF06692

PATIENT
  Age: 53 Year
  Sex: Male

DRUGS (5)
  1. DOCETAXEL. [Suspect]
     Active Substance: DOCETAXEL
     Route: 065
  2. DEGARELIX [Suspect]
     Active Substance: DEGARELIX
     Route: 065
  3. ABIRATERONE [Suspect]
     Active Substance: ABIRATERONE
     Route: 065
  4. OLAPARIB. [Suspect]
     Active Substance: OLAPARIB
     Route: 048
  5. BICALUTAMIDE. [Suspect]
     Active Substance: BICALUTAMIDE
     Route: 048

REACTIONS (3)
  - Tumour invasion [Unknown]
  - Anaemia [Unknown]
  - Malignant neoplasm progression [Unknown]
